FAERS Safety Report 23082545 (Version 2)
Quarter: 2023Q4

REPORT INFORMATION
  Report Type: Spontaneous
  Country: JP (occurrence: JP)
  Receive Date: 20231019
  Receipt Date: 20231030
  Transmission Date: 20240110
  Serious: No
  Sender: FDA-Public Use
  Company Number: JP-002147023-NVSJ2023JP015034

PATIENT
  Sex: Female

DRUGS (1)
  1. OFATUMUMAB [Suspect]
     Active Substance: OFATUMUMAB
     Indication: Relapsing-remitting multiple sclerosis
     Dosage: UNK
     Route: 058

REACTIONS (3)
  - Coronavirus infection [Unknown]
  - Injection related reaction [Unknown]
  - Pyrexia [Unknown]
